FAERS Safety Report 10179743 (Version 1)
Quarter: 2014Q2

REPORT INFORMATION
  Report Type: Spontaneous
  Country: US (occurrence: None)
  Receive Date: 20140425
  Receipt Date: 20140425
  Transmission Date: 20141212
  Serious: No
  Sender: FDA-Public Use
  Company Number: AP356-00478-SPO-US

PATIENT
  Age: 67 Year
  Sex: Male
  Weight: 98.2 kg

DRUGS (6)
  1. BELVIQ (LORCASERIN HYDROCHLORIDE) [Suspect]
     Indication: WEIGHT DECREASED
     Route: 048
     Dates: start: 20140220
  2. METFORMIN (METFORMIN) [Concomitant]
  3. GLIMEPIRIDE (GLIMEPIRIDE) [Concomitant]
  4. ATENOLOL (ATENOLOL) [Concomitant]
  5. PRILOSEC [Concomitant]
  6. LOVASTATIN  (LOVASTATIN) [Concomitant]

REACTIONS (6)
  - Urinary straining [None]
  - Feeling drunk [None]
  - Nausea [None]
  - Constipation [None]
  - Feeling abnormal [None]
  - Diarrhoea [None]
